FAERS Safety Report 4938536-7 (Version None)
Quarter: 2006Q1

REPORT INFORMATION
  Report Type: 
  Country: None (occurrence: None)
  Receive Date: 20060113
  Receipt Date: 20041229
  Transmission Date: 20060701
  Serious: Yes (Hospitalization)
  Sender: FDA-Public Use
  Company Number: HQWYE218017JUL04

PATIENT
  Age: 57 Year
  Sex: Female
  Weight: 61.29 kg

DRUGS (5)
  1. PREMPRO [Suspect]
     Indication: WEIGHT INCREASED
     Dosage: ORAL
     Route: 048
     Dates: start: 19951012
  2. PREMARIN [Suspect]
     Indication: ANXIETY
     Dates: start: 20020101
  3. PREMARIN [Suspect]
     Indication: INSOMNIA
     Dates: start: 20020101
  4. PREMARIN [Suspect]
     Indication: MOOD SWINGS
     Dates: start: 20020101
  5. ASPIRIN [Concomitant]

REACTIONS (1)
  - BREAST CANCER [None]
